FAERS Safety Report 4715604-6 (Version None)
Quarter: 2005Q3

REPORT INFORMATION
  Report Type: 
  Country: None (occurrence: None)
  Receive Date: 20050714
  Receipt Date: 20050711
  Transmission Date: 20060218
  Serious: Yes (Hospitalization)
  Sender: FDA-Public Use
  Company Number: GXKR2005DE01284

PATIENT
  Age: 47 Year
  Sex: Female

DRUGS (7)
  1. CITALOPRAM (NGX) CITALOPRAM) UNKNOWN [Suspect]
     Indication: BIPOLAR DISORDER
     Dosage: 20 MG UP TO 40 MG,
  2. MIRTAZAPINE [Suspect]
     Indication: BIPOLAR DISORDER
     Dosage: 30 MG,
  3. JOHANNESKRAUT (NGX) (JOHANNESKRAUT) [Suspect]
     Indication: BIPOLAR DISORDER
     Dosage: 900 MG,
  4. ZIPICLONE (NGX) (ZOPICLONE) [Suspect]
     Indication: BIPOLAR DISORDER
     Dosage: 7.5 MG,
  5. VENLAFAXINE HCL [Suspect]
     Indication: BIPOLAR DISORDER
     Dosage: 112.5 MG,
  6. OLANZAPINE [Suspect]
     Indication: BIPOLAR DISORDER
     Dosage: 2.5 MG, 5 MG,
  7. ESTROGENS, COMBINATIONS WITH OTHER DRUGS (NO INGREDIENTS/SUBSTANCES) [Concomitant]

REACTIONS (2)
  - DRUG TOXICITY [None]
  - HEPATOTOXICITY [None]
